FAERS Safety Report 5157393-X (Version None)
Quarter: 2006Q4

REPORT INFORMATION
  Report Type: 
  Country: None (occurrence: None)
  Receive Date: 20061127
  Receipt Date: 20051012
  Transmission Date: 20070319
  Serious: Yes (Hospitalization)
  Sender: FDA-Public Use
  Company Number: US-ROCHE-420765

PATIENT
  Age: 44 Year
  Sex: Female

DRUGS (2)
  1. CAPECITABINE [Suspect]
     Dosage: DOSAGE NOT PROVIDED (PER PROTOCOL GIVEN ON DAYS 1-14 EVERY THREE WEEKS).
     Route: 048
     Dates: start: 20050429
  2. IXABEPILONE [Suspect]
     Route: 042
     Dates: start: 20050429

REACTIONS (1)
  - HYPOXIA [None]
